FAERS Safety Report 9771799 (Version 1)
Quarter: 2013Q3

REPORT INFORMATION
  Report Type: Spontaneous
  Country: IT (occurrence: None)
  Receive Date: 20130919
  Receipt Date: 20130919
  Transmission Date: 20140515
  Serious: No
  Sender: FDA-Public Use
  Company Number: B0922210A

PATIENT
  Sex: Male

DRUGS (1)
  1. PAROXETINE HYDROCHLORIDE [Suspect]
     Indication: ANTIDEPRESSANT THERAPY
     Route: 064

REACTIONS (10)
  - Maternal drugs affecting foetus [None]
  - Drug withdrawal syndrome neonatal [None]
  - Neonatal behavioural syndrome [None]
  - Neonatal respiratory distress syndrome [None]
  - Decerebrate posture [None]
  - Hypertonia neonatal [None]
  - Hyperreflexia [None]
  - Irritability [None]
  - Tremor neonatal [None]
  - Dyskinesia [None]
